FAERS Safety Report 16651201 (Version 1)
Quarter: 2019Q3

REPORT INFORMATION
  Report Type: Spontaneous
  Country: US (occurrence: US)
  Receive Date: 20190731
  Receipt Date: 20190731
  Transmission Date: 20191004
  Serious: No
  Sender: FDA-Public Use
  Company Number: US-TEVA-2019-US-1085459

PATIENT
  Age: 50 Year
  Sex: Male

DRUGS (6)
  1. ALPRAZOLAM. [Concomitant]
     Active Substance: ALPRAZOLAM
  2. AJOVY [Suspect]
     Active Substance: FREMANEZUMAB-VFRM
     Indication: MIGRAINE
     Dosage: 225 MG / 1.5 ML
     Dates: start: 201903
  3. TOPIRAMATE. [Concomitant]
     Active Substance: TOPIRAMATE
  4. VIMPAT [Concomitant]
     Active Substance: LACOSAMIDE
  5. RIZATRIPTAN. [Concomitant]
     Active Substance: RIZATRIPTAN
  6. MELOXICAM. [Concomitant]
     Active Substance: MELOXICAM

REACTIONS (4)
  - Vertigo [Recovered/Resolved]
  - Injection site mass [Unknown]
  - Injection site pruritus [Unknown]
  - Dysgeusia [Recovered/Resolved]
